FAERS Safety Report 20232238 (Version 1)
Quarter: 2021Q4

REPORT INFORMATION
  Report Type: Spontaneous
  Country: US (occurrence: None)
  Receive Date: 20211224
  Receipt Date: 20211224
  Transmission Date: 20220303
  Serious: Yes (Life-Threatening, Hospitalization)
  Sender: FDA-Public Use
  Company Number: None

PATIENT
  Age: 47 Year
  Sex: Male
  Weight: 75.6 kg

DRUGS (1)
  1. DOXYCYCLINE HYCLATE [Suspect]
     Active Substance: DOXYCYCLINE HYCLATE
     Indication: Infection
     Dosage: OTHER QUANTITY : 20 CAPSULE(S);?FREQUENCY : TWICE A DAY;?
     Route: 048
     Dates: start: 20211222, end: 20211224

REACTIONS (7)
  - Peripheral swelling [None]
  - Lip swelling [None]
  - Rash [None]
  - Circulatory collapse [None]
  - Loss of consciousness [None]
  - Seizure [None]
  - Eye movement disorder [None]

NARRATIVE: CASE EVENT DATE: 20211224
